FAERS Safety Report 5383258-4 (Version None)
Quarter: 2007Q3

REPORT INFORMATION
  Report Type: 
  Country: None (occurrence: None)
  Receive Date: 20070705
  Receipt Date: 20070621
  Transmission Date: 20080115
  Serious: Yes (Hospitalization)
  Sender: FDA-Public Use
  Company Number: 2007AP000674

PATIENT
  Sex: Male

DRUGS (1)
  1. APO-DOXAZOSIN (DOXAZOSIN MESILATE) [Suspect]
     Dosage: 4 MG

REACTIONS (2)
  - DRUG DISPENSING ERROR [None]
  - HYPOTENSION [None]
